FAERS Safety Report 19482503 (Version 1)
Quarter: 2021Q3

REPORT INFORMATION
  Report Type: Report from Study
  Country: MX (occurrence: MX)
  Receive Date: 20210701
  Receipt Date: 20210701
  Transmission Date: 20211014
  Serious: Yes (Hospitalization)
  Sender: FDA-Public Use
  Company Number: NVSC2021MX127189

PATIENT
  Age: 82 Year
  Sex: Female
  Weight: 65 kg

DRUGS (3)
  1. DIOVAN [Suspect]
     Active Substance: VALSARTAN
     Dosage: 1 DF, QD, 80 MG, STARTED 2 YEARS AGO
     Route: 048
     Dates: end: 202101
  2. DIOVAN [Suspect]
     Active Substance: VALSARTAN
     Dosage: 1 ? DF, QD, 80 MG
     Route: 048
     Dates: start: 202101
  3. DIOVAN [Suspect]
     Active Substance: VALSARTAN
     Indication: HYPERTENSION
     Dosage: 1.5 DF, 1 IN THE MORNING AND HALF AT NIGHT IF PRESSURE IS HIGH
     Route: 048

REACTIONS (6)
  - Hypertension [Unknown]
  - COVID-19 [Recovered/Resolved with Sequelae]
  - Pyrexia [Unknown]
  - Cough [Unknown]
  - Wrong technique in product usage process [Unknown]
  - Blood pressure inadequately controlled [Recovered/Resolved]

NARRATIVE: CASE EVENT DATE: 202012
